FAERS Safety Report 19236112 (Version 2)
Quarter: 2021Q2

REPORT INFORMATION
  Report Type: Spontaneous
  Country: US (occurrence: US)
  Receive Date: 20210510
  Receipt Date: 20210602
  Transmission Date: 20210717
  Serious: No
  Sender: FDA-Public Use
  Company Number: US-GLAXOSMITHKLINE-USCH2021026141

PATIENT
  Age: 71 Year
  Sex: Female

DRUGS (1)
  1. ABREVA [Suspect]
     Active Substance: DOCOSANOL
     Indication: ORAL HERPES
     Dosage: UNK
     Dates: start: 20210428, end: 20210503

REACTIONS (5)
  - Lip pain [Unknown]
  - Drug ineffective [Unknown]
  - Erythema [Unknown]
  - Photosensitivity reaction [Unknown]
  - Lip dry [Unknown]

NARRATIVE: CASE EVENT DATE: 202104
